FAERS Safety Report 7242035-X (Version None)
Quarter: 2011Q1

REPORT INFORMATION
  Report Type: 
  Country: None (occurrence: None)
  Receive Date: 20110124
  Receipt Date: 20101210
  Transmission Date: 20110831
  Serious: Yes (Death, Hospitalization, Other)
  Sender: FDA-Public Use
  Company Number: US-BAXTER-2010BH000141

PATIENT
  Age: 25 Year
  Sex: Female
  Weight: 49 kg

DRUGS (11)
  1. SODIUM BICARBONATE [Concomitant]
     Indication: PRODUCT USED FOR UNKNOWN INDICATION
     Route: 065
     Dates: start: 20080122, end: 20080122
  2. IRON [Concomitant]
     Indication: PRODUCT USED FOR UNKNOWN INDICATION
     Route: 065
  3. NOVEL ERYTHROPOIESIS STIMULATING PROTEIN [Concomitant]
     Indication: PRODUCT USED FOR UNKNOWN INDICATION
     Route: 065
  4. HEPARIN SODIUM INJECTION [Suspect]
     Route: 065
     Dates: start: 20071127, end: 20071127
  5. ATROPINE [Concomitant]
     Indication: PRODUCT USED FOR UNKNOWN INDICATION
     Route: 065
     Dates: start: 20080122, end: 20080122
  6. HEPARIN SODIUM INJECTION [Suspect]
     Indication: ARTERIOVENOUS FISTULA OPERATION
     Route: 040
     Dates: start: 20071001, end: 20080101
  7. HEPARIN SODIUM INJECTION [Suspect]
     Route: 065
     Dates: start: 20071127, end: 20071127
  8. EPINEPHRINE [Concomitant]
     Indication: PRODUCT USED FOR UNKNOWN INDICATION
     Route: 065
     Dates: start: 20080122, end: 20080122
  9. ANTIBIOTICS [Concomitant]
     Indication: PRODUCT USED FOR UNKNOWN INDICATION
     Route: 065
  10. NALOXONE [Concomitant]
     Indication: PRODUCT USED FOR UNKNOWN INDICATION
     Route: 065
     Dates: start: 20080122, end: 20080122
  11. HEPARIN SODIUM INJECTION [Suspect]
     Indication: HAEMODIALYSIS
     Route: 040
     Dates: start: 20071001, end: 20080101

REACTIONS (21)
  - CHOKING [None]
  - CARDIAC ARREST [None]
  - VISUAL IMPAIRMENT [None]
  - RENAL FAILURE CHRONIC [None]
  - FUNGAL SEPSIS [None]
  - ASTHENIA [None]
  - ARRHYTHMIA [None]
  - PELVIC FRACTURE [None]
  - COELIAC DISEASE [None]
  - RESPIRATORY FAILURE [None]
  - UNRESPONSIVE TO STIMULI [None]
  - VOMITING [None]
  - RIB FRACTURE [None]
  - TYPE 1 DIABETES MELLITUS [None]
  - HYPOTENSION [None]
  - TACHYCARDIA [None]
  - INFECTION SUSCEPTIBILITY INCREASED [None]
  - MENTAL STATUS CHANGES [None]
  - DEVICE RELATED INFECTION [None]
  - SEPSIS [None]
  - BLOOD GLUCOSE INCREASED [None]
